FAERS Safety Report 15834940 (Version 4)
Quarter: 2019Q1

REPORT INFORMATION
  Report Type: Report from Study
  Country: CA (occurrence: CA)
  Receive Date: 20190116
  Receipt Date: 20190227
  Transmission Date: 20190417
  Serious: Yes (Hospitalization, Other)
  Sender: FDA-Public Use
  Company Number: CA-ROCHE-2245697

PATIENT
  Age: 56 Year
  Sex: Male

DRUGS (13)
  1. PANTOLOC [Concomitant]
     Active Substance: PANTOPRAZOLE SODIUM
  2. ATORVASTATIN [Concomitant]
     Active Substance: ATORVASTATIN
  3. DILAUDID [Concomitant]
     Active Substance: HYDROMORPHONE HYDROCHLORIDE
  4. LOSARTAN. [Concomitant]
     Active Substance: LOSARTAN
  5. ACTEMRA [Suspect]
     Active Substance: TOCILIZUMAB
     Indication: RHEUMATOID ARTHRITIS
     Route: 042
     Dates: start: 20190110
  6. AMLODIPINE [Concomitant]
     Active Substance: AMLODIPINE BESYLATE
  7. ZOPICLONE [Concomitant]
     Active Substance: ZOPICLONE
  8. ACETYLSALICYLIC ACID [Concomitant]
     Active Substance: ASPIRIN
  9. HYDROMORPH [Concomitant]
     Active Substance: HYDROMORPHONE
  10. METHOTREXATE. [Concomitant]
     Active Substance: METHOTREXATE
  11. BISOPROLOL [Concomitant]
     Active Substance: BISOPROLOL
  12. TAMSULOSIN [Concomitant]
     Active Substance: TAMSULOSIN
  13. FOLIC ACID. [Concomitant]
     Active Substance: FOLIC ACID

REACTIONS (9)
  - Asthenia [Unknown]
  - Chest pain [Unknown]
  - Sense of oppression [Recovered/Resolved]
  - Dyspnoea [Unknown]
  - Blood pressure systolic increased [Unknown]
  - Hypotension [Unknown]
  - Hot flush [Unknown]
  - Fatigue [Unknown]
  - Spondylitis [Unknown]

NARRATIVE: CASE EVENT DATE: 20190110
